FAERS Safety Report 9614604 (Version 1)
Quarter: 2013Q4

REPORT INFORMATION
  Report Type: Spontaneous
  Country: US (occurrence: None)
  Receive Date: 20131009
  Receipt Date: 20131009
  Transmission Date: 20140711
  Serious: No
  Sender: FDA-Public Use
  Company Number: None

PATIENT
  Age: 39 Year
  Sex: Female
  Weight: 61.69 kg

DRUGS (2)
  1. VENLAFAXINE [Suspect]
     Indication: ANXIETY
  2. VENLAFAXINE [Suspect]
     Indication: DEPRESSION

REACTIONS (2)
  - Dizziness [None]
  - Vertigo [None]
